FAERS Safety Report 7940901-0 (Version None)
Quarter: 2011Q4

REPORT INFORMATION
  Report Type: 
  Country: None (occurrence: None)
  Receive Date: 20111122
  Receipt Date: 20111114
  Transmission Date: 20120403
  Serious: Yes (Hospitalization)
  Sender: FDA-Public Use
  Company Number: 1107771

PATIENT
  Age: 52 Year
  Sex: Male
  Weight: 90.71 kg

DRUGS (7)
  1. METHOTREXATE [Suspect]
     Indication: ARTHRITIS
     Dosage: 25 MG 1 WEEK, SUBCUTANEOUS
     Route: 058
     Dates: start: 20110501, end: 20111103
  2. PERINDOPRIL ERBUMINE [Suspect]
     Indication: HYPERTENSION
     Dosage: 8 MG, ORAL
     Route: 048
     Dates: start: 20110817
  3. AMLODIPINE [Concomitant]
  4. ACETAMINOPHEN AND CODEINE PHOSPHATE [Concomitant]
  5. METHOTREXATE [Suspect]
     Indication: ARTHRITIS
     Dosage: 20 MG, 1 WEEK, ORAL
     Route: 048
  6. ETORICOXIB [Concomitant]
  7. FOLIC ACID [Concomitant]

REACTIONS (2)
  - HYPERTENSION [None]
  - PANCREATITIS [None]
